FAERS Safety Report 19596638 (Version 1)
Quarter: 2021Q3

REPORT INFORMATION
  Report Type: Spontaneous
  Country: AU (occurrence: AU)
  Receive Date: 20210722
  Receipt Date: 20210722
  Transmission Date: 20211014
  Serious: Yes (Other)
  Sender: FDA-Public Use
  Company Number: AU-AMERICAN REGENT INC-2021001877

PATIENT
  Age: 32 Year
  Sex: Female

DRUGS (2)
  1. FERINJECT [Suspect]
     Active Substance: FERRIC CARBOXYMALTOSE
     Indication: PLANNING TO BECOME PREGNANT
     Dosage: UNK
     Dates: start: 20210720, end: 20210720
  2. FERINJECT [Suspect]
     Active Substance: FERRIC CARBOXYMALTOSE
     Indication: IRON DEFICIENCY

REACTIONS (6)
  - Tachycardia [Unknown]
  - Skin discolouration [Unknown]
  - Hypotension [Unknown]
  - Unresponsive to stimuli [Recovered/Resolved]
  - Muscle spasms [Unknown]
  - Pallor [Unknown]

NARRATIVE: CASE EVENT DATE: 20210120
